FAERS Safety Report 13115127 (Version 2)
Quarter: 2017Q1

REPORT INFORMATION
  Report Type: Spontaneous
  Country: US (occurrence: US)
  Receive Date: 20170113
  Receipt Date: 20170205
  Transmission Date: 20170428
  Serious: Yes (Death, Hospitalization, Other)
  Sender: FDA-Public Use
  Company Number: US-009507513-1701USA004793

PATIENT
  Age: 51 Year
  Sex: Female

DRUGS (14)
  1. HALDOL [Concomitant]
     Active Substance: HALOPERIDOL
  2. DILAUDID [Concomitant]
     Active Substance: HYDROMORPHONE HYDROCHLORIDE
  3. RAMELTEON [Concomitant]
     Active Substance: RAMELTEON
  4. LIDOCAINE. [Concomitant]
     Active Substance: LIDOCAINE
     Route: 061
  5. PHENYLEPHRINE [Concomitant]
     Active Substance: PHENYLEPHRINE\PHENYLEPHRINE HYDROCHLORIDE
     Route: 061
  6. KEYTRUDA [Suspect]
     Active Substance: PEMBROLIZUMAB
     Indication: METASTATIC GASTRIC CANCER
     Dosage: 120 MG, ONCE
     Route: 042
     Dates: start: 20161219, end: 20161219
  7. PROTONIX [Concomitant]
     Active Substance: PANTOPRAZOLE SODIUM
  8. MIRALAX [Concomitant]
     Active Substance: POLYETHYLENE GLYCOL 3350
     Dosage: UNK
  9. MORPHINE [Concomitant]
     Active Substance: MORPHINE
  10. COMPRO [Concomitant]
     Active Substance: PROCHLORPERAZINE
  11. BISACODYL. [Concomitant]
     Active Substance: BISACODYL
  12. LIDOCAINE HYDROCHLORIDE. [Concomitant]
     Active Substance: LIDOCAINE HYDROCHLORIDE
  13. ZOFRAN [Concomitant]
     Active Substance: ONDANSETRON HYDROCHLORIDE
  14. ATIVAN [Concomitant]
     Active Substance: LORAZEPAM

REACTIONS (4)
  - Death [Fatal]
  - Adverse event [Unknown]
  - Small intestinal obstruction [Unknown]
  - Product use issue [Unknown]

NARRATIVE: CASE EVENT DATE: 2016
